FAERS Safety Report 18071441 (Version 1)
Quarter: 2020Q3

REPORT INFORMATION
  Report Type: Spontaneous
  Country: US (occurrence: US)
  Receive Date: 20200724
  Receipt Date: 20200724
  Transmission Date: 20201103
  Serious: No
  Sender: FDA-Public Use
  Company Number: None

PATIENT
  Age: 49 Year
  Sex: Female
  Weight: 70.2 kg

DRUGS (1)
  1. CLEAN N NATURAL HAND SANITIZER [Suspect]
     Active Substance: ALCOHOL

REACTIONS (2)
  - Dizziness [None]
  - Hypoaesthesia oral [None]

NARRATIVE: CASE EVENT DATE: 20200710
